FAERS Safety Report 9663880 (Version 3)
Quarter: 2014Q1

REPORT INFORMATION
  Report Type: Spontaneous
  Country: DE (occurrence: DE)
  Receive Date: 20131101
  Receipt Date: 20140203
  Transmission Date: 20141002
  Serious: Yes (Death, Hospitalization, Other)
  Sender: FDA-Public Use
  Company Number: DE-ASTELLAS-2013EU009507

PATIENT
  Sex: Male
  Weight: 110 kg

DRUGS (15)
  1. XTANDI [Suspect]
     Indication: PROSTATE CANCER
     Dosage: 160 MG, UID/QD
     Route: 048
     Dates: start: 20130923, end: 20131007
  2. ZOLEDRONIC ACID [Concomitant]
     Dosage: UNK
     Route: 065
  3. HYDROCHLOROTHIAZID [Concomitant]
     Dosage: UNK
     Route: 065
  4. L THYROX [Concomitant]
     Dosage: UNK
     Route: 065
  5. METOHEXAL                          /00376902/ [Concomitant]
     Dosage: UNK
     Route: 065
  6. JURNISTA [Concomitant]
     Dosage: UNK
     Route: 065
  7. FOLIC ACID [Concomitant]
     Dosage: UNK
     Route: 065
  8. ALLOPURINOL [Concomitant]
     Dosage: UNK
     Route: 065
  9. GABAPENTIN [Concomitant]
     Dosage: UNK
     Route: 065
  10. LEVETIRACETAM [Concomitant]
     Dosage: UNK
     Route: 065
  11. TOREM                              /01036501/ [Concomitant]
     Dosage: UNK
     Route: 065
  12. FRAXIPARIN                         /00889603/ [Concomitant]
     Dosage: UNK
     Route: 065
  13. NOVALGIN                           /06276704/ [Concomitant]
     Dosage: UNK
     Route: 065
  14. HORMONES [Concomitant]
     Dosage: UNK
     Route: 065
  15. CALCILAC [Concomitant]
     Dosage: UNK
     Route: 065

REACTIONS (6)
  - Malignant neoplasm progression [Fatal]
  - Abnormal dreams [Unknown]
  - Nausea [Unknown]
  - Vomiting [Unknown]
  - Oedema [Unknown]
  - General physical health deterioration [Unknown]
